FAERS Safety Report 25275190 (Version 7)
Quarter: 2025Q4

REPORT INFORMATION
  Report Type: Report from Study
  Country: US (occurrence: US)
  Receive Date: 20250506
  Receipt Date: 20251025
  Transmission Date: 20260118
  Serious: No
  Sender: TRAVERE THERAPEUTICS
  Company Number: US-TRAVERE-2025TVT00550

PATIENT
  Age: 28 Year
  Sex: Female

DRUGS (7)
  1. FILSPARI [Suspect]
     Active Substance: SPARSENTAN
     Indication: IgA nephropathy
     Route: 048
     Dates: start: 20250415
  2. FILSPARI [Suspect]
     Active Substance: SPARSENTAN
     Route: 048
     Dates: start: 20250429
  3. METOPROLOL [Concomitant]
     Active Substance: METOPROLOL
  4. JARDIANCE [Concomitant]
     Active Substance: EMPAGLIFLOZIN
     Indication: Chronic kidney disease
  5. AMLODIPINE [Concomitant]
     Active Substance: AMLODIPINE BESYLATE
  6. KURVELO [Concomitant]
     Active Substance: ETHINYL ESTRADIOL\LEVONORGESTREL
  7. ALBUTEROL [Concomitant]
     Active Substance: ALBUTEROL

REACTIONS (16)
  - Product administration error [Unknown]
  - Fatigue [Unknown]
  - Abdominal discomfort [None]
  - Swelling face [Unknown]
  - Peripheral swelling [None]
  - Urine abnormality [Unknown]
  - Chromaturia [Unknown]
  - Headache [None]
  - Blood sodium decreased [Unknown]
  - Blood potassium decreased [Unknown]
  - Blood chloride decreased [Unknown]
  - Blood albumin decreased [Unknown]
  - Joint swelling [None]
  - Fluid retention [Unknown]
  - Weight increased [Unknown]
  - Off label use [Unknown]

NARRATIVE: CASE EVENT DATE: 20250415
